FAERS Safety Report 12120824 (Version 1)
Quarter: 2016Q1

REPORT INFORMATION
  Report Type: Spontaneous
  Country: US (occurrence: US)
  Receive Date: 20160226
  Receipt Date: 20160226
  Transmission Date: 20160526
  Serious: Yes (Other)
  Sender: FDA-Public Use
  Company Number: US-ASTRAZENECA-2016SE18829

PATIENT
  Age: 71 Year
  Sex: Female
  Weight: 46.3 kg

DRUGS (9)
  1. B12 SHOT [Concomitant]
     Indication: CROHN^S DISEASE
     Dosage: MONTHLY
     Route: 065
  2. METOPROLOL SUCCINATE. [Suspect]
     Active Substance: METOPROLOL SUCCINATE
     Indication: PULSE ABNORMAL
     Dosage: 25 MG, TWO TIMES A DAY, DR. REDDYS
     Route: 048
     Dates: start: 2011, end: 201509
  3. VITAMIN D3 [Concomitant]
     Active Substance: CHOLECALCIFEROL
     Indication: OSTEOPOROSIS
     Route: 048
  4. VITAMIN B6 [Concomitant]
     Active Substance: PYRIDOXINE HYDROCHLORIDE
     Indication: NEUROPATHY PERIPHERAL
     Route: 048
     Dates: start: 201406
  5. FOLIC ACID. [Concomitant]
     Active Substance: FOLIC ACID
     Indication: CROHN^S DISEASE
     Route: 048
  6. ACYCLOVIR. [Concomitant]
     Active Substance: ACYCLOVIR
     Route: 048
  7. ASPIRIN. [Concomitant]
     Active Substance: ASPIRIN
     Indication: CARDIAC DISORDER
     Route: 048
  8. METOPROLOL SUCCINATE. [Suspect]
     Active Substance: METOPROLOL SUCCINATE
     Indication: PULSE ABNORMAL
     Dosage: 50 MG, TWO TIMES A DAY, DR. REDDYS
     Route: 048
     Dates: start: 201509
  9. ENTOCORT EC [Suspect]
     Active Substance: BUDESONIDE
     Indication: CROHN^S DISEASE
     Route: 048
     Dates: start: 2012

REACTIONS (12)
  - Amyloidosis [Recovered/Resolved]
  - Dizziness [Unknown]
  - Dehydration [Unknown]
  - Cognitive disorder [Unknown]
  - Osteopenia [Unknown]
  - Blood pressure systolic increased [Unknown]
  - Blood cholesterol increased [Unknown]
  - Blood sodium decreased [Unknown]
  - Product use issue [Unknown]
  - Blood triglycerides increased [Unknown]
  - Herpes zoster [Unknown]
  - Off label use [Unknown]

NARRATIVE: CASE EVENT DATE: 2011
